FAERS Safety Report 10619678 (Version 1)
Quarter: 2014Q4

REPORT INFORMATION
  Report Type: Report from Study
  Country: BR (occurrence: BR)
  Receive Date: 20141202
  Receipt Date: 20141202
  Transmission Date: 20150529
  Serious: Yes (Hospitalization, Other)
  Sender: FDA-Public Use
  Company Number: BR-ABBVIE-14K-020-1312577-00

PATIENT
  Age: 58 Year
  Sex: Male
  Weight: 76 kg

DRUGS (5)
  1. LOSARTAN [Concomitant]
     Active Substance: LOSARTAN
     Indication: HYPERTENSION
     Route: 048
     Dates: start: 201411
  2. CHLOROQUINE [Concomitant]
     Active Substance: CHLOROQUINE\CHLOROQUINE PHOSPHATE
     Indication: ARTHRITIS
     Route: 048
     Dates: start: 2004
  3. ATENOLOL. [Concomitant]
     Active Substance: ATENOLOL
     Indication: HYPERTENSION
     Dosage: HALF TABLET
     Route: 048
     Dates: start: 2004
  4. HUMIRA [Suspect]
     Active Substance: ADALIMUMAB
     Indication: RHEUMATOID ARTHRITIS
     Route: 058
     Dates: start: 20140313, end: 201406
  5. PREDNISONE. [Concomitant]
     Active Substance: PREDNISONE
     Indication: PAIN
     Route: 048
     Dates: start: 2009

REACTIONS (5)
  - Coma [Recovered/Resolved]
  - Sepsis [Recovered/Resolved]
  - Dysentery [Recovered/Resolved]
  - Haemodialysis [Recovered/Resolved]
  - Dysentery [Recovered/Resolved]

NARRATIVE: CASE EVENT DATE: 20140623
